FAERS Safety Report 9508889 (Version 1)
Quarter: 2013Q3

REPORT INFORMATION
  Report Type: Spontaneous
  Country: US (occurrence: US)
  Receive Date: 20130909
  Receipt Date: 20130909
  Transmission Date: 20140515
  Serious: Yes (Other)
  Sender: FDA-Public Use
  Company Number: US-BRISTOL-MYERS SQUIBB COMPANY-19050855

PATIENT
  Age: 31 Year
  Sex: Male

DRUGS (7)
  1. ABILIFY INJECTION [Suspect]
     Indication: SCHIZOAFFECTIVE DISORDER
     Dosage: STARTED WITH ORAL ABILIFY
     Dates: start: 20130604
  2. ABILIFY [Suspect]
     Indication: SCHIZOAFFECTIVE DISORDER
  3. ZYPREXA [Suspect]
  4. LUVOX [Suspect]
  5. TOPAMAX [Concomitant]
  6. LAMICTAL [Concomitant]
  7. RISPERDAL CONSTA [Concomitant]

REACTIONS (1)
  - Extrapyramidal disorder [Unknown]
